FAERS Safety Report 10055825 (Version 1)
Quarter: 2014Q2

REPORT INFORMATION
  Report Type: Spontaneous
  Country: DE (occurrence: DE)
  Receive Date: 20140403
  Receipt Date: 20140403
  Transmission Date: 20141212
  Serious: Yes (Other)
  Sender: FDA-Public Use
  Company Number: DE-MYLANLABS-2014S1006777

PATIENT
  Age: 50 Year
  Sex: Female

DRUGS (6)
  1. TOCILIZUMAB [Suspect]
     Indication: TEMPORAL ARTERITIS
     Dosage: 8 MG/KG BODY WEIGHT
     Route: 065
  2. METHOTREXATE [Suspect]
     Indication: TEMPORAL ARTERITIS
     Route: 065
  3. METHOTREXATE [Suspect]
     Indication: OFF LABEL USE
     Route: 065
  4. PREDNISONE [Concomitant]
     Indication: TEMPORAL ARTERITIS
     Dosage: 20MG/DAY
     Route: 065
  5. CYCLOPHOSPHAMIDE [Concomitant]
     Indication: TEMPORAL ARTERITIS
     Route: 065
  6. PREDNISONE [Concomitant]
     Indication: TEMPORAL ARTERITIS
     Dosage: 5MG/DAY
     Route: 065

REACTIONS (2)
  - Autoimmune thyroiditis [Recovered/Resolved]
  - Pneumonitis [Unknown]
